FAERS Safety Report 10694277 (Version 2)
Quarter: 2015Q1

REPORT INFORMATION
  Report Type: Spontaneous
  Country: DE (occurrence: DE)
  Receive Date: 20150107
  Receipt Date: 20150120
  Transmission Date: 20150721
  Serious: Yes (Hospitalization, Disabling, Other)
  Sender: FDA-Public Use
  Company Number: DE-ROCHE-1515775

PATIENT
  Age: 52 Year
  Sex: Female
  Weight: 62 kg

DRUGS (2)
  1. AVASTIN [Suspect]
     Active Substance: BEVACIZUMAB
     Indication: SARCOMA
     Route: 042
     Dates: start: 20140902, end: 20141121
  2. DACARBAZINE. [Suspect]
     Active Substance: DACARBAZINE
     Indication: SARCOMA
     Route: 042
     Dates: start: 20140721, end: 20141121

REACTIONS (5)
  - Metastases to spine [Unknown]
  - Paraplegia [Not Recovered/Not Resolved]
  - Thrombocytopenia [Unknown]
  - Spinal cord haemorrhage [Not Recovered/Not Resolved]
  - Spinal disorder [Unknown]

NARRATIVE: CASE EVENT DATE: 20141125
